FAERS Safety Report 5558718-3 (Version None)
Quarter: 2007Q4

REPORT INFORMATION
  Report Type: 
  Country: None (occurrence: None)
  Receive Date: 20071214
  Receipt Date: 20070904
  Transmission Date: 20080405
  Serious: No
  Sender: FDA-Public Use
  Company Number: US-ABBOTT-07P-163-0416271-00

PATIENT
  Sex: Female
  Weight: 69.462 kg

DRUGS (1)
  1. HUMIRA [Suspect]
     Indication: RHEUMATOID ARTHRITIS
     Route: 058
     Dates: start: 20070101

REACTIONS (6)
  - ACCIDENTAL EXPOSURE [None]
  - HYPOAESTHESIA [None]
  - INTERVERTEBRAL DISC PROTRUSION [None]
  - PALPITATIONS [None]
  - RAYNAUD'S PHENOMENON [None]
  - WHITE BLOOD CELL COUNT DECREASED [None]
